FAERS Safety Report 8594514-0 (Version None)
Quarter: 2012Q3

REPORT INFORMATION
  Report Type: 
  Country: None (occurrence: None)
  Receive Date: 20120801
  Receipt Date: 20120720
  Transmission Date: 20120928
  Serious: Yes (Other)
  Sender: FDA-Public Use
  Company Number: ENTC2012-0332

PATIENT
  Age: 67 Year
  Sex: Female

DRUGS (5)
  1. PHENOBARBITAL TAB [Concomitant]
  2. DEPAKOTE [Concomitant]
  3. PRAMIPEXOLE DIHYDROCHLORIDE [Concomitant]
  4. STALEVO 50 [Suspect]
     Indication: PARKINSON'S DISEASE
     Dosage: 3 TABLETS A DAY, 50/12.5/200 MG (IN FASTING, AT 11:00 AND 16:00) ORAL
     Route: 048
  5. QUETIAPIM [Concomitant]

REACTIONS (5)
  - DEMENTIA ALZHEIMER'S TYPE [None]
  - NAUSEA [None]
  - DIZZINESS [None]
  - SALIVARY HYPERSECRETION [None]
  - MALAISE [None]
